FAERS Safety Report 11124777 (Version 2)
Quarter: 2015Q4

REPORT INFORMATION
  Report Type: Spontaneous
  Country: KR (occurrence: KR)
  Receive Date: 20150520
  Receipt Date: 20151215
  Transmission Date: 20160304
  Serious: Yes (Hospitalization)
  Sender: FDA-Public Use
  Company Number: KR-AMGEN-KORCT2015048938

PATIENT
  Age: 58 Year
  Sex: Female
  Weight: 54.4 kg

DRUGS (64)
  1. G-LASTA [Suspect]
     Active Substance: PEGFILGRASTIM
     Dosage: 6 MG, 1X/3WEEKS
     Route: 058
     Dates: start: 20150501
  2. DARBEPOETIN ALFA [Concomitant]
     Active Substance: DARBEPOETIN ALFA
     Dosage: 357 MUG, UNK
     Route: 058
     Dates: start: 20150417, end: 20150417
  3. DEXRAZOXANE. [Concomitant]
     Active Substance: DEXRAZOXANE
     Dosage: 750 MG, UNK
     Route: 042
     Dates: start: 20150319, end: 20150319
  4. DEXRAZOXANE. [Concomitant]
     Active Substance: DEXRAZOXANE
     Dosage: 750 MG, UNK
     Route: 042
     Dates: start: 20150430, end: 20150430
  5. DIMENHYDRINATE. [Concomitant]
     Active Substance: DIMENHYDRINATE
     Dosage: 150 MG, UNK
     Route: 048
     Dates: start: 20150319, end: 20150321
  6. TOBRAMYCIN. [Concomitant]
     Active Substance: TOBRAMYCIN
     Dosage: 200 MG, UNK
     Route: 042
     Dates: start: 20150416, end: 20150416
  7. PHAZYME                            /00164001/ [Concomitant]
     Dosage: 95 MG, UNK
     Route: 048
     Dates: start: 20150327, end: 20150331
  8. FILGRASTIM [Concomitant]
     Active Substance: FILGRASTIM
     Dosage: 150 MCG, UNK
     Route: 058
     Dates: start: 20150416, end: 20150416
  9. DOCETAXEL. [Concomitant]
     Active Substance: DOCETAXEL
     Dosage: 112 MG, UNK
     Route: 042
     Dates: start: 20150319, end: 20150319
  10. DOXORUBICIN [Concomitant]
     Active Substance: DOXORUBICIN
     Dosage: 75 MG, UNK
     Route: 042
     Dates: start: 20150430, end: 20150430
  11. DEXAMETHASONE. [Concomitant]
     Active Substance: DEXAMETHASONE
     Dosage: 3 MG, UNK
     Route: 048
     Dates: start: 20150320, end: 20150321
  12. LEGALON [Concomitant]
     Active Substance: MILK THISTLE
     Dosage: 420 MG, UNK
     Route: 048
     Dates: start: 20150319, end: 20150326
  13. APREPITANT. [Concomitant]
     Active Substance: APREPITANT
     Dosage: 125 MG, UNK
     Route: 048
     Dates: start: 20150409, end: 20150409
  14. CEFOBACTAM [Concomitant]
     Dosage: 2 G, UNK
     Route: 042
     Dates: start: 20150326, end: 20150327
  15. TRESTAN                            /00056201/ [Concomitant]
     Dosage: 2CAP., UNK
     Route: 048
     Dates: start: 20150416, end: 20150418
  16. COUGH SYRUP [Concomitant]
     Active Substance: DEXTROMETHORPHAN HYDROBROMIDE\GUAIFENESIN
     Dosage: 60 ML, UNK
     Route: 048
     Dates: start: 20150422, end: 20150429
  17. DOXORUBICIN [Concomitant]
     Active Substance: DOXORUBICIN
     Dosage: 75 MG, UNK
     Route: 042
     Dates: start: 20150409, end: 20150409
  18. CYCLOPHOSPHAMIDE. [Concomitant]
     Active Substance: CYCLOPHOSPHAMIDE
     Dosage: 750 MG, UNK
     Route: 042
     Dates: start: 20150430, end: 20150430
  19. PALONOSETRON [Concomitant]
     Active Substance: PALONOSETRON
     Dosage: 0.25 MG, UNK
     Route: 042
     Dates: start: 20150319, end: 20150319
  20. DIMENHYDRINATE. [Concomitant]
     Active Substance: DIMENHYDRINATE
     Dosage: 150 MG, UNK
     Route: 048
     Dates: start: 20150409, end: 20150411
  21. METOCLOPRAMIDE HCL [Concomitant]
     Active Substance: METOCLOPRAMIDE HYDROCHLORIDE
     Dosage: 30 MG, UNK
     Route: 048
     Dates: start: 20150409, end: 20150411
  22. LOPERAMIDE [Concomitant]
     Active Substance: LOPERAMIDE
     Dosage: 6 MG, UNK
     Route: 048
     Dates: start: 20150422, end: 20150429
  23. CYCLOPHOSPHAMIDE. [Concomitant]
     Active Substance: CYCLOPHOSPHAMIDE
     Dosage: 750 MG, UNK
     Route: 042
     Dates: start: 20150319, end: 20150319
  24. CYCLOPHOSPHAMIDE. [Concomitant]
     Active Substance: CYCLOPHOSPHAMIDE
     Dosage: 750 MG, UNK
     Route: 042
     Dates: start: 20150409, end: 20150409
  25. RISENEXPLUS [Concomitant]
     Dosage: 35 MG, UNK
     Route: 048
     Dates: start: 20150312
  26. APREPITANT. [Concomitant]
     Active Substance: APREPITANT
     Dosage: 125 MG, UNK
     Route: 048
     Dates: start: 20150430, end: 20150430
  27. DIMENHYDRINATE. [Concomitant]
     Active Substance: DIMENHYDRINATE
     Dosage: 150 MG, UNK
     Route: 048
     Dates: start: 20150430, end: 20150502
  28. METOCLOPRAMIDE HCL [Concomitant]
     Active Substance: METOCLOPRAMIDE HYDROCHLORIDE
     Dosage: 30 MG, UNK
     Route: 048
     Dates: start: 20150430, end: 20150502
  29. RANITIDINE [Concomitant]
     Active Substance: RANITIDINE\RANITIDINE HYDROCHLORIDE
     Dosage: 300 MG, UNK
     Route: 048
     Dates: start: 20150409, end: 20150411
  30. MEGASTROL [Concomitant]
     Dosage: 200 ML, UNK
     Route: 048
     Dates: start: 20150416, end: 20150418
  31. VITAMEDIN                          /00176001/ [Concomitant]
     Dosage: 50 MG, UNK
     Route: 048
     Dates: start: 20150326, end: 20150327
  32. SEPTRIN [Concomitant]
     Active Substance: SULFAMETHOXAZOLE\TRIMETHOPRIM
     Dosage: 800 MG, UNK
     Route: 048
     Dates: start: 20150326, end: 20150328
  33. CHLORPHENAMINE [Concomitant]
     Active Substance: CHLORPHENIRAMINE MALEATE
     Dosage: 4 MG, UNK
     Route: 042
     Dates: start: 20150505, end: 20150505
  34. FILGRASTIM [Concomitant]
     Active Substance: FILGRASTIM
     Dosage: 150 MCG, UNK
     Route: 058
     Dates: start: 20150326, end: 20150327
  35. DEXAMETHASONE. [Concomitant]
     Active Substance: DEXAMETHASONE
     Dosage: 10 MG, UNK
     Route: 048
     Dates: start: 20150430, end: 20150430
  36. PENNEL                             /01570505/ [Concomitant]
     Dosage: 3 CAP, UNK
     Route: 048
     Dates: start: 20150319, end: 20150326
  37. METOCLOPRAMIDE HCL [Concomitant]
     Active Substance: METOCLOPRAMIDE HYDROCHLORIDE
     Dosage: 30 MG, UNK
     Route: 048
     Dates: start: 20150319, end: 20150321
  38. RANITIDINE [Concomitant]
     Active Substance: RANITIDINE\RANITIDINE HYDROCHLORIDE
     Dosage: 300 MG, UNK
     Route: 048
     Dates: start: 20150319, end: 20150321
  39. G-LASTA [Suspect]
     Active Substance: PEGFILGRASTIM
     Dosage: 6 MG, 1X/3WEEKS
     Route: 058
     Dates: start: 20150410
  40. DOXORUBICIN [Concomitant]
     Active Substance: DOXORUBICIN
     Dosage: 75 MG, UNK
     Route: 042
     Dates: start: 20150319, end: 20150319
  41. DEXAMETHASONE. [Concomitant]
     Active Substance: DEXAMETHASONE
     Dosage: 3 MG, UNK
     Route: 048
     Dates: start: 20150410, end: 20150411
  42. APREPITANT. [Concomitant]
     Active Substance: APREPITANT
     Dosage: 125 MG, UNK
     Route: 048
     Dates: start: 20150319, end: 20150319
  43. APREPITANT. [Concomitant]
     Active Substance: APREPITANT
     Dosage: 80 MG, UNK
     Route: 048
     Dates: start: 20150320, end: 20150321
  44. VITAMEDIN                          /00176001/ [Concomitant]
     Dosage: 50 MG, UNK
     Route: 048
     Dates: start: 20150416, end: 20150418
  45. KETOROLAC [Concomitant]
     Active Substance: KETOROLAC\KETOROLAC TROMETHAMINE
     Dosage: 30 MG, UNK
     Route: 042
     Dates: start: 20150505, end: 20150505
  46. CEFTRIAXONE. [Concomitant]
     Active Substance: CEFTRIAXONE
     Dosage: 2 G, UNK
     Route: 042
     Dates: start: 20150504, end: 20150507
  47. G-LASTA [Suspect]
     Active Substance: PEGFILGRASTIM
     Indication: FEBRILE NEUTROPENIA
     Dosage: 6 MG, 1X/3WEEKS
     Route: 058
     Dates: start: 20150320
  48. DEXAMETHASONE. [Concomitant]
     Active Substance: DEXAMETHASONE
     Dosage: 10 MG, UNK
     Route: 042
     Dates: start: 20150319, end: 20150319
  49. DEXAMETHASONE. [Concomitant]
     Active Substance: DEXAMETHASONE
     Dosage: 10 MG, UNK
     Route: 042
     Dates: start: 20150409, end: 20150409
  50. DEXAMETHASONE. [Concomitant]
     Active Substance: DEXAMETHASONE
     Dosage: 3 MG, UNK
     Route: 048
     Dates: start: 20150501, end: 20150502
  51. PALONOSETRON [Concomitant]
     Active Substance: PALONOSETRON
     Dosage: 0.25 MG, UNK
     Route: 042
     Dates: start: 20150409, end: 20150409
  52. PALONOSETRON [Concomitant]
     Active Substance: PALONOSETRON
     Dosage: 0.25 MG, UNK
     Route: 042
     Dates: start: 20150430, end: 20150430
  53. DEXRAZOXANE. [Concomitant]
     Active Substance: DEXRAZOXANE
     Dosage: 750 MG, UNK
     Route: 042
     Dates: start: 20150409, end: 20150409
  54. DOCETAXEL. [Concomitant]
     Active Substance: DOCETAXEL
     Dosage: 112 MG, UNK
     Route: 042
     Dates: start: 20150409, end: 20150409
  55. DOCETAXEL. [Concomitant]
     Active Substance: DOCETAXEL
     Dosage: 112 MG, UNK
     Route: 042
     Dates: start: 20150430, end: 20150430
  56. APREPITANT. [Concomitant]
     Active Substance: APREPITANT
     Dosage: 80 MG, UNK
     Route: 048
     Dates: start: 20150410, end: 20150411
  57. APREPITANT. [Concomitant]
     Active Substance: APREPITANT
     Dosage: 80 MG, UNK
     Route: 048
     Dates: start: 20150501, end: 20150502
  58. RANITIDINE [Concomitant]
     Active Substance: RANITIDINE\RANITIDINE HYDROCHLORIDE
     Dosage: 300 MG, UNK
     Route: 048
     Dates: start: 20150430, end: 20150502
  59. CEFOBACTAM [Concomitant]
     Dosage: 2 G, UNK
     Route: 042
     Dates: start: 20150416, end: 20150416
  60. TOBRAMYCIN. [Concomitant]
     Active Substance: TOBRAMYCIN
     Dosage: 200 MG, UNK
     Route: 042
     Dates: start: 20150326, end: 20150327
  61. MEGASTROL [Concomitant]
     Dosage: 800 MG, UNK
     Route: 048
     Dates: start: 20150326, end: 20150327
  62. TRESTAN                            /00056201/ [Concomitant]
     Dosage: 2CAP., UNK
     Route: 048
     Dates: start: 20150326, end: 20150327
  63. DICLOFENAC [Concomitant]
     Active Substance: DICLOFENAC
     Dosage: 75 MG, UNK
     Route: 030
     Dates: start: 20150417, end: 20150417
  64. ORNITHINE ASPARTATE [Concomitant]
     Active Substance: ORNITHINE ASPARTATE
     Dosage: 10 G, UNK
     Route: 042
     Dates: start: 20150505, end: 20150509

REACTIONS (1)
  - Febrile neutropenia [Recovered/Resolved]

NARRATIVE: CASE EVENT DATE: 20150506
